FAERS Safety Report 5506824-1 (Version None)
Quarter: 2007Q4

REPORT INFORMATION
  Report Type: 
  Country: None (occurrence: None)
  Receive Date: 20071105
  Receipt Date: 20071025
  Transmission Date: 20080405
  Serious: Yes (Other)
  Sender: FDA-Public Use
  Company Number: US-JNJFOC-20070901655

PATIENT
  Sex: Male

DRUGS (6)
  1. REMICADE [Suspect]
     Indication: CROHN'S DISEASE
  2. ZEGERID [Concomitant]
     Indication: GASTROOESOPHAGEAL REFLUX DISEASE
  3. NADOLOL [Concomitant]
  4. MARINOL [Concomitant]
  5. DURAGESIC-100 [Concomitant]
     Indication: PAIN
     Route: 062
  6. KLONOPIN [Concomitant]

REACTIONS (2)
  - EOSINOPHILIC OESOPHAGITIS [None]
  - OESOPHAGEAL STENOSIS [None]
